FAERS Safety Report 21871289 (Version 1)
Quarter: 2023Q1

REPORT INFORMATION
  Report Type: Spontaneous
  Country: US (occurrence: US)
  Receive Date: 20230117
  Receipt Date: 20230117
  Transmission Date: 20230418
  Serious: Yes (Hospitalization, Other)
  Sender: FDA-Public Use
  Company Number: US-RECKITT BENCKISER HEALTHCARE INT LIMITED-RB-081718-2023

PATIENT
  Age: 23 Year
  Sex: Male

DRUGS (4)
  1. DEXTROMETHORPHAN [Suspect]
     Active Substance: DEXTROMETHORPHAN
     Indication: Suicide attempt
     Dosage: 800-1000 MG APPROX, UNK
     Route: 048
  2. DEXTROMETHORPHAN [Suspect]
     Active Substance: DEXTROMETHORPHAN
     Indication: Drug abuse
  3. BUPROPION [Suspect]
     Active Substance: BUPROPION
     Indication: Suicide attempt
     Dosage: 300 MILLIGRAM, SINGLE
     Route: 065
  4. TRAZODONE [Suspect]
     Active Substance: TRAZODONE HYDROCHLORIDE
     Indication: Suicide attempt
     Dosage: 100 MILLIGRAM, SINGLE
     Route: 065

REACTIONS (15)
  - Suicide attempt [Unknown]
  - Serotonin syndrome [Not Recovered/Not Resolved]
  - Hallucinations, mixed [Unknown]
  - Drug abuse [Unknown]
  - Muscle spasms [Unknown]
  - Myoclonus [Not Recovered/Not Resolved]
  - Hyperreflexia [Unknown]
  - Clonus [Unknown]
  - Mydriasis [Unknown]
  - Condition aggravated [Not Recovered/Not Resolved]
  - Tachycardia [Unknown]
  - Hypertension [Unknown]
  - Abdominal pain [Unknown]
  - Overdose [Unknown]
  - Flushing [Unknown]
